FAERS Safety Report 5012969-5 (Version None)
Quarter: 2006Q2

REPORT INFORMATION
  Report Type: 
  Country: None (occurrence: None)
  Receive Date: 20060530
  Receipt Date: 20060420
  Transmission Date: 20061013
  Serious: Yes (Hospitalization, Other)
  Sender: FDA-Public Use
  Company Number: US-AVENTIS-200613709US

PATIENT
  Sex: Male

DRUGS (12)
  1. LOVENOX [Suspect]
     Indication: THROMBOSIS PROPHYLAXIS
     Dates: end: 20060101
  2. DILTIAZEM [Concomitant]
     Dosage: DOSE: UNK
  3. COLACE [Concomitant]
     Dosage: DOSE: UNK
  4. HYDROCORTISONE [Concomitant]
     Dosage: DOSE: UNK
  5. REGLAN [Concomitant]
     Dosage: DOSE: UNK
  6. LOPRESSOR [Concomitant]
     Dosage: DOSE: UNK
  7. PROTONIX [Concomitant]
     Dosage: DOSE: UNK
  8. ZOLOFT [Concomitant]
     Dosage: DOSE: UNK
  9. CIPRO [Concomitant]
     Dosage: DOSE: UNK
  10. DIFLUCAN [Concomitant]
     Dosage: DOSE: UNK
  11. ZYVOX [Concomitant]
     Dosage: DOSE: UNK
  12. POTASSIUM [Concomitant]
     Dosage: DOSE: UNK

REACTIONS (23)
  - ABDOMINAL DISTENSION [None]
  - ABDOMINAL PAIN [None]
  - ATELECTASIS [None]
  - BREATH SOUNDS ABNORMAL [None]
  - BRONCHITIS BACTERIAL [None]
  - CHRONIC OBSTRUCTIVE PULMONARY DISEASE [None]
  - CONTUSION [None]
  - DISSEMINATED INTRAVASCULAR COAGULATION [None]
  - ECCHYMOSIS [None]
  - ESCHERICHIA SEPSIS [None]
  - GENERAL PHYSICAL HEALTH DETERIORATION [None]
  - HAEMATOCRIT DECREASED [None]
  - HAEMOGLOBIN DECREASED [None]
  - HEPARIN-INDUCED THROMBOCYTOPENIA [None]
  - HEPATIC ENZYME INCREASED [None]
  - ISCHAEMIC HEPATITIS [None]
  - LETHARGY [None]
  - LUNG INFILTRATION [None]
  - OEDEMA PERIPHERAL [None]
  - PANCREAS INFECTION [None]
  - RESPIRATORY FAILURE [None]
  - RHONCHI [None]
  - SEPTIC SHOCK [None]
